FAERS Safety Report 6140882-9 (Version None)
Quarter: 2009Q2

REPORT INFORMATION
  Report Type: 
  Country: None (occurrence: None)
  Receive Date: 20090401
  Receipt Date: 20090401
  Transmission Date: 20091009
  Serious: Yes (Other)
  Sender: FDA-Public Use
  Company Number: None

PATIENT
  Age: 55 Year
  Sex: Female

DRUGS (11)
  1. PURSENNID (NCH) (SENNA GLYCOSIDES (CA SALTS OF PURIFIED SENNA EXTRACT) [Suspect]
     Dosage: 84 MG DAILY ORAL
     Route: 048
  2. BLONANSERIN (BLONANSERIN) [Concomitant]
  3. DEPAKENE [Concomitant]
  4. HIRNAMIN (LEVOMEPROMAZINE) [Concomitant]
  5. AKINETON /AUS/(BIPERIDEN HYPERCHLORIDE) [Concomitant]
  6. MAGMITT KENEI (MAGNESIUM OXIDE) [Concomitant]
  7. VEGETAMINE B (CHLORPROMAZINE HYDROCHLORIDE, PHENOBARBITAL, PROMETHAZIN [Concomitant]
  8. NITRAZEPAM [Concomitant]
  9. RHYTHMY (RILMAZAFONE) [Concomitant]
  10. ADJUST-A (SENNA ALEXANDRINA LEAF) [Concomitant]
  11. LAXOBERON (SODIUM PICOSULFATE) [Concomitant]

REACTIONS (1)
  - BLOOD GLUCOSE DECREASED [None]
